FAERS Safety Report 15191046 (Version 1)
Quarter: 2018Q3

REPORT INFORMATION
  Report Type: Spontaneous
  Country: ES (occurrence: ES)
  Receive Date: 20180724
  Receipt Date: 20180724
  Transmission Date: 20181010
  Serious: Yes (Hospitalization)
  Sender: FDA-Public Use
  Company Number: ES-TEVA-2018-ES-857701

PATIENT
  Age: 82 Year
  Sex: Female

DRUGS (6)
  1. PARACETAMOL (12A) [Suspect]
     Active Substance: ACETAMINOPHEN
     Route: 065
     Dates: start: 20171116
  2. EPROSARTAN (7411A) [Suspect]
     Active Substance: EPROSARTAN
     Route: 065
     Dates: start: 2017
  3. METAMIZOLE [Suspect]
     Active Substance: METAMIZOLE
     Indication: CHOLECYSTECTOMY
     Route: 065
     Dates: start: 20171116
  4. AMLODIPINO (2503A) [Suspect]
     Active Substance: AMLODIPINE BESYLATE
     Indication: HYPERTENSION
     Route: 065
     Dates: start: 2017
  5. URSODESOXICOLICO ACIDO (1174A) [Suspect]
     Active Substance: URSODIOL
     Route: 065
     Dates: start: 2017
  6. HIDROCLOROTIAZIDA (1343A) [Suspect]
     Active Substance: HYDROCHLOROTHIAZIDE
     Route: 065
     Dates: start: 2017

REACTIONS (1)
  - Febrile neutropenia [Recovering/Resolving]

NARRATIVE: CASE EVENT DATE: 20171124
